FAERS Safety Report 8179679-7 (Version None)
Quarter: 2012Q1

REPORT INFORMATION
  Report Type: 
  Country: None (occurrence: None)
  Receive Date: 20120302
  Receipt Date: 20120301
  Transmission Date: 20120608
  Serious: Yes (Other)
  Sender: FDA-Public Use
  Company Number: US-BAYER-2012-020561

PATIENT
  Age: 48 Year
  Sex: Female

DRUGS (3)
  1. BETASERON [Suspect]
     Dosage: UNK
     Dates: start: 20100928, end: 20111201
  2. BETASERON [Suspect]
     Dosage: UNK
     Dates: start: 20090203, end: 20091226
  3. BETASERON [Suspect]
     Indication: MULTIPLE SCLEROSIS
     Dosage: UNK
     Dates: start: 20081103, end: 20090105

REACTIONS (2)
  - THYROID CANCER [None]
  - THYROID MASS [None]
